FAERS Safety Report 10612010 (Version 4)
Quarter: 2016Q1

REPORT INFORMATION
  Report Type: Spontaneous
  Country: US (occurrence: US)
  Receive Date: 20141126
  Receipt Date: 20160112
  Transmission Date: 20160525
  Serious: No
  Sender: FDA-Public Use
  Company Number: US-ALLERGAN-1423417US

PATIENT
  Age: 43 Year
  Sex: Female

DRUGS (1)
  1. ACZONE [Suspect]
     Active Substance: DAPSONE
     Indication: ACNE
     Dosage: UNK, BID
     Route: 061
     Dates: start: 20140423

REACTIONS (1)
  - Anaemia [Recovered/Resolved]
